FAERS Safety Report 20193090 (Version 1)
Quarter: 2021Q4

REPORT INFORMATION
  Report Type: Spontaneous
  Country: US (occurrence: None)
  Receive Date: 20211215
  Receipt Date: 20211215
  Transmission Date: 20220303
  Serious: Yes (Life-Threatening, Other)
  Sender: FDA-Public Use
  Company Number: None

PATIENT
  Age: 22 Year
  Sex: Female
  Weight: 61.23 kg

DRUGS (1)
  1. BAMLANIVIMAB\ETESEVIMAB [Suspect]
     Active Substance: BAMLANIVIMAB\ETESEVIMAB
     Indication: COVID-19
     Route: 041
     Dates: start: 20211209, end: 20211209

REACTIONS (6)
  - Infusion related reaction [None]
  - Chest pain [None]
  - Erythema [None]
  - Photopsia [None]
  - Heart rate increased [None]
  - Oxygen saturation decreased [None]

NARRATIVE: CASE EVENT DATE: 20211209
